FAERS Safety Report 13398159 (Version 3)
Quarter: 2017Q2

REPORT INFORMATION
  Report Type: Report from Study
  Country: US (occurrence: US)
  Receive Date: 20170403
  Receipt Date: 20170615
  Transmission Date: 20170830
  Serious: Yes (Hospitalization)
  Sender: FDA-Public Use
  Company Number: US-EXELIXIS-XL18417008724

PATIENT
  Age: 71 Year
  Sex: Male
  Weight: 88.5 kg

DRUGS (12)
  1. AMLODIPINE [Concomitant]
     Active Substance: AMLODIPINE BESYLATE
  2. LASIX [Concomitant]
     Active Substance: FUROSEMIDE
  3. LISINOPRIL. [Concomitant]
     Active Substance: LISINOPRIL
  4. PRILOSEC [Concomitant]
     Active Substance: OMEPRAZOLE MAGNESIUM
  5. TUMS [Concomitant]
     Active Substance: CALCIUM CARBONATE
  6. OMEGA 3 [Concomitant]
     Active Substance: OMEGA-3 FATTY ACIDS
  7. GLUCOSAMINE CHONDROITIN [Concomitant]
     Active Substance: CHONDROITIN SULFATE (BOVINE)\GLUCOSAMINE HYDROCHLORIDE
  8. GLIMEPRID [Concomitant]
     Active Substance: GLIMEPIRIDE
  9. MULTIPLE VITAMINS [Concomitant]
     Active Substance: VITAMINS
  10. SIMVASTATIN. [Concomitant]
     Active Substance: SIMVASTATIN
  11. SITAGLIPTIN [Concomitant]
     Active Substance: SITAGLIPTIN
  12. XL184 [Suspect]
     Active Substance: CABOZANTINIB
     Indication: RENAL CELL CARCINOMA
     Dosage: UNK UNK, QD

REACTIONS (4)
  - Hypoglycaemia [Recovered/Resolved]
  - Tooth infection [Recovered/Resolved]
  - Dehydration [Recovered/Resolved]
  - Hyperthyroidism [Not Recovered/Not Resolved]

NARRATIVE: CASE EVENT DATE: 20140326
